FAERS Safety Report 10423059 (Version 3)
Quarter: 2014Q4

REPORT INFORMATION
  Report Type: Report from Study
  Country: CA (occurrence: CA)
  Receive Date: 20140902
  Receipt Date: 20141008
  Transmission Date: 20150528
  Serious: Yes (Hospitalization, Other)
  Sender: FDA-Public Use
  Company Number: CA-AMGEN-CANSP2014065560

PATIENT
  Age: 74 Year
  Sex: Female

DRUGS (2)
  1. NPLATE [Suspect]
     Active Substance: ROMIPLOSTIM
     Indication: THROMBOCYTOPENIA
     Dosage: UNK
     Route: 065
     Dates: start: 20140506
  2. DILAUDID [Concomitant]
     Active Substance: HYDROMORPHONE HYDROCHLORIDE
     Dosage: UNK
     Route: 065

REACTIONS (8)
  - Haemoptysis [Unknown]
  - Contusion [Unknown]
  - Abdominal distension [Unknown]
  - Epistaxis [Unknown]
  - Breast pain [Unknown]
  - Impaired work ability [Unknown]
  - Heart rate increased [Unknown]
  - Dyspnoea exertional [Unknown]
